FAERS Safety Report 18875697 (Version 3)
Quarter: 2021Q2

REPORT INFORMATION
  Report Type: Spontaneous
  Country: JP (occurrence: JP)
  Receive Date: 20210211
  Receipt Date: 20210413
  Transmission Date: 20210717
  Serious: Yes (Other)
  Sender: FDA-Public Use
  Company Number: JP-ROCHE-2766643

PATIENT
  Age: 5 Decade
  Sex: Female

DRUGS (2)
  1. ABRAXANE [Suspect]
     Active Substance: PACLITAXEL
     Indication: TRIPLE NEGATIVE BREAST CANCER
     Dosage: DOSAGE IS UNCERTAIN.
     Route: 041
  2. TECENTRIQ [Suspect]
     Active Substance: ATEZOLIZUMAB
     Indication: TRIPLE NEGATIVE BREAST CANCER
     Route: 041
     Dates: start: 20210120, end: 20210203

REACTIONS (7)
  - Myelosuppression [Recovered/Resolved]
  - Neutrophil count decreased [Unknown]
  - Hepatic function abnormal [Recovered/Resolved]
  - Abdominal pain upper [Recovered/Resolved]
  - Cholecystitis [Recovered/Resolved]
  - Gallbladder enlargement [Unknown]
  - Bradycardia [Unknown]
